FAERS Safety Report 8511465-8 (Version None)
Quarter: 2012Q3

REPORT INFORMATION
  Report Type: 
  Country: None (occurrence: None)
  Receive Date: 20120716
  Receipt Date: 20120713
  Transmission Date: 20120928
  Serious: No
  Sender: FDA-Public Use
  Company Number: US-PFIZER INC-2012042994

PATIENT
  Sex: Female
  Weight: 90.703 kg

DRUGS (8)
  1. XANAX [Suspect]
     Indication: DEPRESSION
     Dosage: UNK
  2. POTASSIUM PENICILLIN G [Suspect]
     Dosage: UNK
  3. METFORMIN [Concomitant]
     Indication: BLOOD GLUCOSE ABNORMAL
     Dosage: UNK
  4. TROVAN [Suspect]
     Dosage: UNK
  5. MOBIC [Concomitant]
     Dosage: UNK
  6. CELEXA [Suspect]
     Dosage: UNK
  7. PRAVASTATIN [Concomitant]
     Indication: BLOOD CHOLESTEROL ABNORMAL
     Dosage: UNK
  8. PAXIL [Suspect]
     Indication: DEPRESSION
     Dosage: UNK

REACTIONS (4)
  - DIZZINESS [None]
  - PANIC ATTACK [None]
  - DRUG HYPERSENSITIVITY [None]
  - MALAISE [None]
